FAERS Safety Report 6740084-9 (Version None)
Quarter: 2010Q2

REPORT INFORMATION
  Report Type: 
  Country: None (occurrence: None)
  Receive Date: 20100525
  Receipt Date: 20100108
  Transmission Date: 20101027
  Serious: No
  Sender: FDA-Public Use
  Company Number: A0838508A

PATIENT
  Sex: Male

DRUGS (1)
  1. BACTROBAN [Suspect]
     Indication: EYELID CYST
     Route: 061

REACTIONS (2)
  - EYE IRRITATION [None]
  - LACRIMATION INCREASED [None]
